FAERS Safety Report 8158624-4 (Version None)
Quarter: 2012Q1

REPORT INFORMATION
  Report Type: 
  Country: None (occurrence: None)
  Receive Date: 20120223
  Receipt Date: 20120216
  Transmission Date: 20120608
  Serious: Yes (Other)
  Sender: FDA-Public Use
  Company Number: FR-UCBSA-051859

PATIENT
  Age: 51 Year
  Sex: Female

DRUGS (1)
  1. CIMZIA [Suspect]
     Indication: ANKYLOSING SPONDYLITIS
     Dosage: ONLY 2 INJECTIONS RECEIVED
     Route: 058
     Dates: start: 20111022, end: 20111105

REACTIONS (3)
  - NEURALGIA [None]
  - FORMICATION [None]
  - BRONCHITIS [None]
